FAERS Safety Report 6841938-5 (Version None)
Quarter: 2010Q3

REPORT INFORMATION
  Report Type: 
  Country: None (occurrence: None)
  Receive Date: 20100714
  Receipt Date: 20070716
  Transmission Date: 20110219
  Serious: No
  Sender: FDA-Public Use
  Company Number: US-PFIZER INC-2007060435

PATIENT
  Sex: Male
  Weight: 86.4 kg

DRUGS (5)
  1. CHANTIX [Suspect]
     Indication: SMOKING CESSATION THERAPY
     Dates: start: 20070713
  2. ULTRAM [Concomitant]
  3. VICODIN [Concomitant]
  4. AMOXICILLIN [Concomitant]
  5. ADDERALL 10 [Concomitant]
     Indication: ATTENTION DEFICIT/HYPERACTIVITY DISORDER

REACTIONS (10)
  - ABNORMAL DREAMS [None]
  - FATIGUE [None]
  - FEELING ABNORMAL [None]
  - FORMICATION [None]
  - HYPERACUSIS [None]
  - MALAISE [None]
  - MIGRAINE [None]
  - PAROSMIA [None]
  - PHOTOPHOBIA [None]
  - SENSORY DISTURBANCE [None]
